FAERS Safety Report 7533697-8 (Version None)
Quarter: 2011Q2

REPORT INFORMATION
  Report Type: 
  Country: None (occurrence: None)
  Receive Date: 20110608
  Receipt Date: 20110602
  Transmission Date: 20111010
  Serious: Yes (Congenital Anomaly, Other)
  Sender: FDA-Public Use
  Company Number: TR-ABBOTT-11P-161-0730265-00

PATIENT

DRUGS (1)
  1. VALPROIC ACID [Suspect]
     Indication: DRUG EXPOSURE DURING PREGNANCY
     Route: 064

REACTIONS (3)
  - HYPOTHYROIDISM [None]
  - DRUG EXPOSURE DURING PREGNANCY [None]
  - FOETAL ANTICONVULSANT SYNDROME [None]
